FAERS Safety Report 14612160 (Version 1)
Quarter: 2018Q1

REPORT INFORMATION
  Report Type: Spontaneous
  Country: US (occurrence: US)
  Receive Date: 20180307
  Receipt Date: 20180307
  Transmission Date: 20180509
  Serious: No
  Sender: FDA-Public Use
  Company Number: None

PATIENT
  Age: 71 Year
  Sex: Female
  Weight: 68.85 kg

DRUGS (12)
  1. BACITRACIN CREAM [Concomitant]
  2. HYDROCORTISONE TOPICAL [Concomitant]
     Active Substance: HYDROCORTISONE
  3. CELEBREX [Concomitant]
     Active Substance: CELECOXIB
  4. BONIVA [Concomitant]
     Active Substance: IBANDRONATE SODIUM
  5. LIPITOR [Concomitant]
     Active Substance: ATORVASTATIN CALCIUM
  6. COQ10 [Concomitant]
     Active Substance: UBIDECARENONE
  7. FISH OIL [Concomitant]
     Active Substance: FISH OIL
  8. VITAMIN C [Concomitant]
     Active Substance: ASCORBIC ACID
  9. LEVOFLOXACIN. [Suspect]
     Active Substance: LEVOFLOXACIN
     Indication: SINUSITIS
     Dosage: ?          QUANTITY:1 TABLET(S);?
     Route: 048
  10. ASPIRIN 81 MG [Concomitant]
     Active Substance: ASPIRIN
  11. VITAMINS NOS [Concomitant]
     Active Substance: VITAMINS
  12. PROBIOTIC [Concomitant]
     Active Substance: PROBIOTICS NOS

REACTIONS (3)
  - Syncope [None]
  - Headache [None]
  - Treatment noncompliance [None]

NARRATIVE: CASE EVENT DATE: 20180306
